FAERS Safety Report 5177604-4 (Version None)
Quarter: 2006Q4

REPORT INFORMATION
  Report Type: 
  Country: None (occurrence: None)
  Receive Date: 20061207
  Receipt Date: 20061128
  Transmission Date: 20070319
  Serious: Yes (Death, Hospitalization)
  Sender: FDA-Public Use
  Company Number: 2006143631

PATIENT
  Age: 64 Year
  Sex: Male
  Weight: 60 kg

DRUGS (1)
  1. SUTENT [Suspect]
     Indication: METASTATIC RENAL CELL CARCINOMA
     Dosage: 50 MG (50 MG, 1 IN 1 D), ORAL
     Route: 048
     Dates: start: 20051230, end: 20061119

REACTIONS (27)
  - ANAEMIA [None]
  - ARTERIAL DISORDER [None]
  - ASCITES [None]
  - ATELECTASIS [None]
  - BACTERIA STOOL IDENTIFIED [None]
  - BLOOD CALCIUM DECREASED [None]
  - CEREBRAL ISCHAEMIA [None]
  - CEREBROVASCULAR ACCIDENT [None]
  - COGNITIVE DISORDER [None]
  - ENCEPHALITIS [None]
  - FAILURE TO THRIVE [None]
  - GENERAL PHYSICAL HEALTH DETERIORATION [None]
  - INTERNATIONAL NORMALISED RATIO INCREASED [None]
  - LYMPHADENOPATHY [None]
  - MALNUTRITION [None]
  - METABOLIC ENCEPHALOPATHY [None]
  - METASTASES TO LIVER [None]
  - PLEURAL EFFUSION [None]
  - PNEUMOBILIA [None]
  - PORTAL VEIN THROMBOSIS [None]
  - RENAL CYST [None]
  - RENAL FAILURE ACUTE [None]
  - RETROPERITONEAL NEOPLASM [None]
  - REVERSIBLE POSTERIOR LEUKOENCEPHALOPATHY SYNDROME [None]
  - THROMBOCYTOPENIA [None]
  - VASCULITIS [None]
  - VENOUS THROMBOSIS [None]
